FAERS Safety Report 24837324 (Version 1)
Quarter: 2025Q1

REPORT INFORMATION
  Report Type: Spontaneous
  Country: US (occurrence: None)
  Receive Date: 20250113
  Receipt Date: 20250113
  Transmission Date: 20250409
  Serious: Yes (Hospitalization)
  Sender: FDA-CTU
  Company Number: None

PATIENT
  Sex: Female

DRUGS (2)
  1. ORENCIA [Suspect]
     Active Substance: ABATACEPT
     Indication: Rheumatoid arthritis
     Dates: start: 20230617
  2. TRAMADOL HCL TAB 50MG [Concomitant]

REACTIONS (3)
  - Rheumatoid arthritis [None]
  - Pain [None]
  - Intentional dose omission [None]
